APPROVED DRUG PRODUCT: RAMIPRIL
Active Ingredient: RAMIPRIL
Strength: 1.25MG
Dosage Form/Route: CAPSULE;ORAL
Application: A077626 | Product #001 | TE Code: AB
Applicant: LUPIN LTD
Approved: Jun 9, 2008 | RLD: No | RS: No | Type: RX